FAERS Safety Report 25709738 (Version 1)
Quarter: 2025Q3

REPORT INFORMATION
  Report Type: Spontaneous
  Country: IN (occurrence: IN)
  Receive Date: 20250821
  Receipt Date: 20250821
  Transmission Date: 20251021
  Serious: Yes (Life-Threatening, Hospitalization)
  Sender: DR REDDYS
  Company Number: None

PATIENT
  Age: 37 Year
  Sex: Male

DRUGS (1)
  1. DOCETAXEL [Suspect]
     Active Substance: DOCETAXEL
     Indication: Prostate cancer stage III

REACTIONS (6)
  - Tumour lysis syndrome [Recovering/Resolving]
  - Hyperuricaemia [Recovering/Resolving]
  - Hyperkalaemia [Recovering/Resolving]
  - Hyperphosphataemia [Recovering/Resolving]
  - Hypocalcaemia [Recovering/Resolving]
  - Arrhythmia [Recovering/Resolving]
